FAERS Safety Report 23520815 (Version 1)
Quarter: 2024Q1

REPORT INFORMATION
  Report Type: Spontaneous
  Country: FR (occurrence: FR)
  Receive Date: 20240214
  Receipt Date: 20240214
  Transmission Date: 20240410
  Serious: Yes (Other)
  Sender: FDA-Public Use
  Company Number: FR-CELLTRION INC.-2024FR003305

PATIENT

DRUGS (7)
  1. INFLIXIMAB [Suspect]
     Active Substance: INFLIXIMAB
     Indication: Ankylosing spondylitis
     Dosage: C3
     Route: 042
     Dates: start: 20220118, end: 20220118
  2. PREVNAR 13 [Concomitant]
     Active Substance: PNEUMOCOCCAL 13-VALENT CONJUGATE VACCINE
     Indication: Immunisation
     Dosage: 1 DF, TOTAL
     Route: 030
     Dates: start: 20220927, end: 20221127
  3. LORAZEPAM [Concomitant]
     Active Substance: LORAZEPAM
     Indication: Product used for unknown indication
     Dosage: 2.5 MG, QD
     Route: 048
  4. REVAXIS [Concomitant]
     Active Substance: DIPHTHERIA AND TETANUS TOXOIDS AND POLIOVIRUS VACCINE ANTIGENS
     Indication: Immunisation
     Dosage: 1 DF, TOTAL
     Route: 030
     Dates: start: 20220927, end: 20220927
  5. CARTREX [Concomitant]
     Active Substance: ACECLOFENAC
     Indication: Ankylosing spondylitis
     Dosage: 100 MG, QD
     Route: 048
  6. TRAMADOL HYDROCHLORIDE [Concomitant]
     Active Substance: TRAMADOL HYDROCHLORIDE
     Indication: Ankylosing spondylitis
     Dosage: 1 DF, EVERY 12 HOURS
     Route: 048
  7. LANSOPRAZOLE [Concomitant]
     Active Substance: LANSOPRAZOLE
     Indication: Prophylaxis against gastrointestinal ulcer
     Dosage: 15 MG, QD
     Route: 048

REACTIONS (2)
  - Cutaneous lupus erythematosus [Not Recovered/Not Resolved]
  - Underdose [Unknown]
